FAERS Safety Report 4766576-X (Version None)
Quarter: 2005Q3

REPORT INFORMATION
  Report Type: 
  Country: None (occurrence: None)
  Receive Date: 20050908
  Receipt Date: 20050824
  Transmission Date: 20060218
  Serious: Yes (Death, Other)
  Sender: FDA-Public Use
  Company Number: 165743

PATIENT
  Sex: Female

DRUGS (8)
  1. AVONEX [Suspect]
     Indication: MULTIPLE SCLEROSIS
     Dosage: 30 UG;QW;IM
     Route: 030
     Dates: start: 19991110
  2. BACLOFEN [Concomitant]
  3. AMANTADINE [Concomitant]
  4. DILANTIN [Concomitant]
  5. ZYPREXA [Concomitant]
  6. INDOCIN [Concomitant]
  7. LIDODERM PATCH [Concomitant]
  8. ESTROPIPATE [Concomitant]

REACTIONS (4)
  - MULTIPLE SCLEROSIS [None]
  - PULMONARY EMBOLISM [None]
  - PULMONARY THROMBOSIS [None]
  - RESPIRATORY ARREST [None]
